FAERS Safety Report 23448897 (Version 1)
Quarter: 2024Q1

REPORT INFORMATION
  Report Type: Report from Study
  Country: CA (occurrence: CA)
  Receive Date: 20240128
  Receipt Date: 20240128
  Transmission Date: 20240410
  Serious: Yes (Hospitalization)
  Sender: FDA-Public Use
  Company Number: CA-002147023-NVSC2023CA270446

PATIENT
  Age: 65 Year
  Sex: Male

DRUGS (2)
  1. TAFINLAR [Suspect]
     Active Substance: DABRAFENIB MESYLATE
     Indication: Malignant melanoma
     Dosage: 150 MG, BID
     Route: 048
     Dates: start: 20231117, end: 20240113
  2. MEKINIST [Suspect]
     Active Substance: TRAMETINIB DIMETHYL SULFOXIDE
     Indication: Malignant melanoma
     Dosage: 2 MG, QD
     Route: 048
     Dates: start: 20231117, end: 20240113

REACTIONS (6)
  - Asthenia [Recovering/Resolving]
  - Illness [Recovering/Resolving]
  - Pyrexia [Recovering/Resolving]
  - Migraine [Unknown]
  - Nausea [Unknown]
  - Diarrhoea [Unknown]
